FAERS Safety Report 12985182 (Version 1)
Quarter: 2016Q4

REPORT INFORMATION
  Report Type: Spontaneous
  Country: AE (occurrence: AE)
  Receive Date: 20161129
  Receipt Date: 20161129
  Transmission Date: 20170207
  Serious: Yes (Hospitalization, Other)
  Sender: FDA-Public Use
  Company Number: AE-009507513-1611ARE012998

PATIENT

DRUGS (1)
  1. JANUMET [Suspect]
     Active Substance: METFORMIN HYDROCHLORIDE\SITAGLIPTIN PHOSPHATE
     Dosage: 50/1000MG TABLET, 25 TABLETS, ONCE
     Route: 048

REACTIONS (5)
  - Suicide attempt [Unknown]
  - Acute kidney injury [Unknown]
  - Hypotension [Unknown]
  - Lactic acidosis [Unknown]
  - Intentional overdose [Unknown]
